FAERS Safety Report 18108426 (Version 8)
Quarter: 2023Q4

REPORT INFORMATION
  Report Type: Spontaneous
  Country: JP (occurrence: JP)
  Receive Date: 20200804
  Receipt Date: 20231021
  Transmission Date: 20240109
  Serious: Yes (Hospitalization, Other)
  Sender: FDA-Public Use
  Company Number: JP-AMGEN-JPNSP2020122784

PATIENT
  Age: 83 Year
  Sex: Male
  Weight: 61.7 kg

DRUGS (8)
  1. EVENITY [Suspect]
     Active Substance: ROMOSOZUMAB-AQQG
     Indication: Osteoporosis
     Dosage: 210 MILLIGRAM, QMO
     Route: 058
     Dates: start: 20200721, end: 20200721
  2. CARBIDOPA\LEVODOPA [Concomitant]
     Active Substance: CARBIDOPA\LEVODOPA
     Dosage: 100 MILLIGRAM, TID
  3. MAGNESIUM OXIDE [Concomitant]
     Active Substance: MAGNESIUM OXIDE
     Dosage: 330 MILLIGRAM, TID
  4. ASPIRIN [Concomitant]
     Active Substance: ASPIRIN
     Dosage: 100 MILLIGRAM, QD
  5. LANSOPRAZOLE [Concomitant]
     Active Substance: LANSOPRAZOLE
     Dosage: 15 MILLIGRAM, QD
  6. VALSARTAN [Concomitant]
     Active Substance: VALSARTAN
     Dosage: 80 MILLIGRAM, QD
  7. CARVEDILOL [Concomitant]
     Active Substance: CARVEDILOL
     Dosage: 10 MILLIGRAM, QD
  8. ATORVASTATIN [Concomitant]
     Active Substance: ATORVASTATIN
     Dosage: 10 MILLIGRAM, QD

REACTIONS (3)
  - Acute kidney injury [Recovered/Resolved]
  - Altered state of consciousness [Recovering/Resolving]
  - Blood pressure decreased [Recovered/Resolved]

NARRATIVE: CASE EVENT DATE: 20200722
